FAERS Safety Report 6161148-7 (Version None)
Quarter: 2009Q2

REPORT INFORMATION
  Report Type: 
  Country: None (occurrence: None)
  Receive Date: 20090417
  Receipt Date: 20090401
  Transmission Date: 20091009
  Serious: Yes (Hospitalization)
  Sender: FDA-Public Use
  Company Number: 8040092

PATIENT
  Age: 29 Year
  Sex: Female
  Weight: 55.3 kg

DRUGS (5)
  1. CIMZIA [Suspect]
     Indication: CROHN'S DISEASE
     Dosage: 400 MG 1/2W SC
     Route: 058
     Dates: start: 20081020
  2. CIMZIA [Suspect]
     Indication: CROHN'S DISEASE
     Dosage: 400 MG /M SC
     Route: 058
  3. PREDNISONE [Concomitant]
  4. IMURAN [Concomitant]
  5. ACIPHEX [Concomitant]

REACTIONS (3)
  - ABSCESS INTESTINAL [None]
  - ANAEMIA [None]
  - RASH [None]
